FAERS Safety Report 7668144-9 (Version None)
Quarter: 2011Q3

REPORT INFORMATION
  Report Type: 
  Country: None (occurrence: None)
  Receive Date: 20110808
  Receipt Date: 20110729
  Transmission Date: 20111222
  Serious: Yes (Death)
  Sender: FDA-Public Use
  Company Number: NZ-PFIZER INC-2011176430

PATIENT

DRUGS (2)
  1. HUMAN PAPILLOMAVIRUS VACCINE [Suspect]
     Dosage: UNK
  2. MEDROXYPROGESTERONE ACETATE [Suspect]
     Dosage: UNK

REACTIONS (5)
  - NIGHT SWEATS [None]
  - PARAESTHESIA [None]
  - SUDDEN DEATH [None]
  - COGNITIVE DISORDER [None]
  - MUSCULAR WEAKNESS [None]
